FAERS Safety Report 8432022-8 (Version None)
Quarter: 2012Q2

REPORT INFORMATION
  Report Type: 
  Country: None (occurrence: None)
  Receive Date: 20120613
  Receipt Date: 20120117
  Transmission Date: 20120825
  Serious: No
  Sender: FDA-Public Use
  Company Number: US-ASTRAZENECA-2012SE03165

PATIENT
  Sex: Male

DRUGS (1)
  1. RHINOCORT [Suspect]
     Indication: PULMONARY FIBROSIS
     Route: 045

REACTIONS (2)
  - RHINITIS ALLERGIC [None]
  - CIRCUMSTANCE OR INFORMATION CAPABLE OF LEADING TO MEDICATION ERROR [None]
